FAERS Safety Report 9387308 (Version 2)
Quarter: 2014Q2

REPORT INFORMATION
  Report Type: Spontaneous
  Country: PL (occurrence: PL)
  Receive Date: 20130708
  Receipt Date: 20140519
  Transmission Date: 20141212
  Serious: Yes (Other)
  Sender: FDA-Public Use
  Company Number: PL-CELGENEUS-129-50794-11073312

PATIENT
  Age: 73 Year
  Sex: Female

DRUGS (3)
  1. VIDAZA [Suspect]
     Indication: ACUTE MYELOID LEUKAEMIA
     Route: 058
     Dates: start: 201104
  2. PROPAFENONE [Concomitant]
     Indication: ATRIAL FIBRILLATION
     Route: 065
  3. HEPARIN [Concomitant]
     Indication: PROPHYLAXIS
     Route: 065

REACTIONS (7)
  - Atrial fibrillation [Unknown]
  - Pneumonia [Unknown]
  - Arterial thrombosis [Unknown]
  - Febrile neutropenia [Unknown]
  - Pulmonary embolism [Unknown]
  - Thrombocytopenia [Unknown]
  - Paraproteinaemia [Unknown]
